FAERS Safety Report 10905520 (Version 2)
Quarter: 2015Q2

REPORT INFORMATION
  Report Type: Spontaneous
  Country: US (occurrence: US)
  Receive Date: 20150311
  Receipt Date: 20150403
  Transmission Date: 20150821
  Serious: No
  Sender: FDA-Public Use
  Company Number: US-PFIZER INC-2015086272

PATIENT
  Age: 68 Year
  Sex: Female

DRUGS (1)
  1. CLINDAMYCIN HCL [Suspect]
     Active Substance: CLINDAMYCIN HYDROCHLORIDE
     Indication: TOOTH ABSCESS
     Dosage: 150 MG, 4X/DAY
     Route: 048
     Dates: start: 20150226, end: 20150228

REACTIONS (5)
  - Paraesthesia [Unknown]
  - Abdominal pain [Unknown]
  - Nausea [Unknown]
  - Back pain [Unknown]
  - Acne [Unknown]

NARRATIVE: CASE EVENT DATE: 20150226
